FAERS Safety Report 8438928-8 (Version None)
Quarter: 2012Q2

REPORT INFORMATION
  Report Type: 
  Country: None (occurrence: None)
  Receive Date: 20120615
  Receipt Date: 20120608
  Transmission Date: 20120825
  Serious: Yes (Hospitalization, Other)
  Sender: FDA-Public Use
  Company Number: US-ELI_LILLY_AND_COMPANY-US201206002775

PATIENT
  Sex: Male

DRUGS (3)
  1. LANTUS [Concomitant]
     Indication: TYPE 1 DIABETES MELLITUS
     Dosage: 32 U, QD
     Route: 058
     Dates: start: 20070101, end: 20100101
  2. HUMALOG [Suspect]
     Indication: TYPE 1 DIABETES MELLITUS
     Dosage: UNK UNK, UNKNOWN
  3. LANTUS [Concomitant]
     Dosage: 58 U, QD
     Route: 058
     Dates: start: 20100101

REACTIONS (1)
  - LIVER TRANSPLANT [None]
